FAERS Safety Report 7519236-6 (Version None)
Quarter: 2011Q2

REPORT INFORMATION
  Report Type: 
  Country: None (occurrence: None)
  Receive Date: 20110602
  Receipt Date: 20110517
  Transmission Date: 20111010
  Serious: No
  Sender: FDA-Public Use
  Company Number: US-B.I. PHARMACEUTICALS,INC./RIDGEFIELD-2011-BP-13378BP

PATIENT
  Sex: Male

DRUGS (12)
  1. LISINOPRIL [Concomitant]
     Indication: HYPERTENSION
     Dosage: 5 MG
     Route: 048
     Dates: start: 20100101
  2. LASIX [Concomitant]
     Indication: HYPERTENSION
     Dates: start: 20100101
  3. SIMVASTATIN [Concomitant]
     Indication: BLOOD CHOLESTEROL INCREASED
     Dates: start: 20100101
  4. PRADAXA [Suspect]
     Dosage: 150 MG
     Route: 048
     Dates: start: 20110320, end: 20110513
  5. ZOCOR [Concomitant]
     Indication: BLOOD CHOLESTEROL INCREASED
     Dates: start: 20100101
  6. MELOXICAM [Concomitant]
     Dates: start: 20100101
  7. OMEPRAZOLE [Concomitant]
     Indication: ULCER
     Dosage: 40 MG
     Dates: start: 20090101
  8. TOPROL-XL [Concomitant]
     Indication: HYPERTENSION
  9. PRADAXA [Suspect]
     Indication: ATRIAL FIBRILLATION
     Dosage: 300 MG
     Route: 048
     Dates: start: 20110304, end: 20110319
  10. ASPIRIN [Concomitant]
     Indication: ROUTINE HEALTH MAINTENANCE
     Dosage: 81 MG
     Dates: start: 20090101
  11. TOPROL-XL [Concomitant]
     Indication: ATRIAL FIBRILLATION
     Route: 048
  12. FLOMAX [Concomitant]
     Indication: PROSTATOMEGALY
     Dosage: 0.4 MG
     Route: 048

REACTIONS (3)
  - HEART RATE IRREGULAR [None]
  - DYSPNOEA [None]
  - DIZZINESS [None]
